FAERS Safety Report 7471277-3 (Version None)
Quarter: 2011Q2

REPORT INFORMATION
  Report Type: 
  Country: None (occurrence: None)
  Receive Date: 20110510
  Receipt Date: 20110504
  Transmission Date: 20111010
  Serious: Yes (Hospitalization)
  Sender: FDA-Public Use
  Company Number: US-GILEAD-2011-0038888

PATIENT
  Sex: Female
  Weight: 59.02 kg

DRUGS (15)
  1. ADCIRCA [Concomitant]
  2. LASIX [Concomitant]
  3. HUMULIN R [Concomitant]
  4. PRAVASTATIN SODIUM [Concomitant]
  5. AMARYL [Concomitant]
  6. METOPROLOL TARTRATE [Concomitant]
  7. FOSAMAX [Concomitant]
  8. ARANESP [Concomitant]
  9. HYDROROXURIA [Concomitant]
  10. LETAIRIS [Suspect]
     Indication: DIASTOLIC DYSFUNCTION
  11. ASPIRIN [Concomitant]
  12. LETAIRIS [Suspect]
     Indication: PULMONARY HYPERTENSION
     Route: 048
     Dates: start: 20110408, end: 20110426
  13. JANUVIA [Concomitant]
  14. SENOKOT [Concomitant]
  15. CITRICAL W/D [Concomitant]

REACTIONS (2)
  - CARDIAC FAILURE CONGESTIVE [None]
  - PNEUMONIA [None]
